FAERS Safety Report 6505994-6 (Version None)
Quarter: 2009Q4

REPORT INFORMATION
  Report Type: 
  Country: None (occurrence: None)
  Receive Date: 20091218
  Receipt Date: 20091210
  Transmission Date: 20100525
  Serious: Yes (Other)
  Sender: FDA-Public Use
  Company Number: CA-ABBOTT-09P-028-0613785-00

PATIENT
  Weight: 127.12 kg

DRUGS (11)
  1. LUPRON DEPOT [Suspect]
     Indication: PROSTATE CANCER
  2. ACETAMINOPHEN [Concomitant]
     Indication: DRUG USE FOR UNKNOWN INDICATION
  3. ASPIRIN [Concomitant]
     Indication: DRUG USE FOR UNKNOWN INDICATION
  4. NORVASC [Concomitant]
     Indication: DRUG USE FOR UNKNOWN INDICATION
     Dosage: 5MG X 1/2 TABLET ON MON, WED, FRI
  5. CALCIUM CARBONATE [Concomitant]
     Indication: DRUG USE FOR UNKNOWN INDICATION
  6. APO-LEVOCARB [Concomitant]
     Indication: DRUG USE FOR UNKNOWN INDICATION
     Dosage: 25MG/100MG X 1.5 TABLETS TWICE DAILY
  7. APO-LEVOCARB [Concomitant]
     Dosage: 25MG/200MG X 1 TABLET AT NOON DAILY
  8. VITAMIN D [Concomitant]
     Indication: DRUG USE FOR UNKNOWN INDICATION
  9. CLONAZEPAM [Concomitant]
     Indication: DRUG USE FOR UNKNOWN INDICATION
     Dosage: 0.5MG X 1.5 TABLETS AT BEDTIME
  10. APO-SIMVASTATIN [Concomitant]
     Indication: DRUG USE FOR UNKNOWN INDICATION
     Dosage: DAILY AT BEDTIME
  11. NOVO-VENLAFAXINE XR [Concomitant]
     Indication: DRUG USE FOR UNKNOWN INDICATION

REACTIONS (1)
  - PROSTATE CANCER METASTATIC [None]
